FAERS Safety Report 11170881 (Version 1)
Quarter: 2015Q2

REPORT INFORMATION
  Report Type: Spontaneous
  Country: US (occurrence: None)
  Receive Date: 20150605
  Receipt Date: 20150605
  Transmission Date: 20150821
  Serious: Yes (Other)
  Sender: FDA-Public Use
  Company Number: None

PATIENT
  Age: 38 Year
  Sex: Female
  Weight: 70.31 kg

DRUGS (6)
  1. MIRALAX [Suspect]
     Active Substance: POLYETHYLENE GLYCOL 3350
     Indication: CONSTIPATION
     Route: 048
     Dates: start: 20150227, end: 20150411
  2. THYROID [Suspect]
     Active Substance: LEVOTHYROXINE\LIOTHYRONINE
  3. PINEAPPLE BROMELAIN [Concomitant]
  4. CALCIUM [Concomitant]
     Active Substance: CALCIUM
  5. TIROSINT [Concomitant]
     Active Substance: LEVOTHYROXINE SODIUM
  6. VITAMINS [Concomitant]
     Active Substance: VITAMINS

REACTIONS (11)
  - Fatigue [None]
  - Visual impairment [None]
  - Presyncope [None]
  - Dysarthria [None]
  - Seizure [None]
  - Feeling abnormal [None]
  - Thinking abnormal [None]
  - Tardive dyskinesia [None]
  - Loss of consciousness [None]
  - Speech disorder [None]
  - Diplopia [None]

NARRATIVE: CASE EVENT DATE: 20150313
